FAERS Safety Report 15557187 (Version 2)
Quarter: 2019Q1

REPORT INFORMATION
  Report Type: Report from Study
  Country: US (occurrence: US)
  Receive Date: 20181026
  Receipt Date: 20190227
  Transmission Date: 20190417
  Serious: Yes (Hospitalization, Other)
  Sender: FDA-Public Use
  Company Number: US-ACTELION-A-US2018-173984

PATIENT
  Sex: Female
  Weight: 59.86 kg

DRUGS (4)
  1. LETAIRIS [Concomitant]
     Active Substance: AMBRISENTAN
  2. COUMADIN [Concomitant]
     Active Substance: WARFARIN SODIUM
  3. VELETRI [Suspect]
     Active Substance: EPOPROSTENOL
     Indication: PULMONARY ARTERIAL HYPERTENSION
     Dosage: 36.5 NG/KG, PER MIN
     Route: 042
  4. ADCIRCA [Concomitant]
     Active Substance: TADALAFIL

REACTIONS (19)
  - Tracheal stenosis [Unknown]
  - General physical health deterioration [Unknown]
  - Nausea [Unknown]
  - Diaphragmatic hernia [Unknown]
  - Pain in jaw [Not Recovered/Not Resolved]
  - Diarrhoea [Not Recovered/Not Resolved]
  - Rash generalised [Not Recovered/Not Resolved]
  - Sinus congestion [Unknown]
  - Tracheostomy [Unknown]
  - Condition aggravated [Unknown]
  - Flushing [Not Recovered/Not Resolved]
  - Nasopharyngitis [Unknown]
  - Dyspnoea [Not Recovered/Not Resolved]
  - Chest pain [Not Recovered/Not Resolved]
  - Sinusitis [Unknown]
  - Dyspnoea exertional [Not Recovered/Not Resolved]
  - Oxygen saturation decreased [Unknown]
  - Headache [Unknown]
  - Dyspnoea at rest [Not Recovered/Not Resolved]
